FAERS Safety Report 15164483 (Version 1)
Quarter: 2018Q3

REPORT INFORMATION
  Report Type: Report from Study
  Country: CA (occurrence: CA)
  Receive Date: 20180719
  Receipt Date: 20180719
  Transmission Date: 20181010
  Serious: Yes (Other)
  Sender: FDA-Public Use
  Company Number: CA-OREXIGEN THERAPEUTICS INC.-2018-005141

PATIENT

DRUGS (4)
  1. CONTRAVE [Suspect]
     Active Substance: BUPROPION HYDROCHLORIDE\NALTREXONE HYDROCHLORIDE
     Indication: WEIGHT CONTROL
     Dosage: 2/2 (WILL TAKES LESS IF NOT FEELING WELL) WEEK 1 ? 1 TABLET DAILY (1 DOSAGE FORMS, 1 IN 1 D)
     Route: 048
     Dates: start: 20180409, end: 201805
  2. CONTRAVE [Suspect]
     Active Substance: BUPROPION HYDROCHLORIDE\NALTREXONE HYDROCHLORIDE
     Dosage: 2 TABLETS IN THE MORNING AND ONE IN THE EVENING (WEEK 3) (3 IN 1 D)
     Route: 048
     Dates: start: 201805
  3. CONTRAVE [Suspect]
     Active Substance: BUPROPION HYDROCHLORIDE\NALTREXONE HYDROCHLORIDE
     Dosage: 2 TABLETS IN THE MORNING AND 2 IN THE EVENING (WEEK 4) (2 DOSAGE FORMS,2 IN 1 D)
     Route: 048
  4. CONTRAVE [Suspect]
     Active Substance: BUPROPION HYDROCHLORIDE\NALTREXONE HYDROCHLORIDE
     Dosage: 1 TABLET IN MORNING AND ONE IN EVENING (WEEK 2) (1 DOSAGE FORMS,2 IN 1 D)
     Route: 048
     Dates: start: 201805

REACTIONS (5)
  - Drug effect incomplete [Not Recovered/Not Resolved]
  - Nausea [Recovered/Resolved]
  - Inappropriate schedule of drug administration [Recovered/Resolved]
  - Menorrhagia [Recovered/Resolved]
  - Hot flush [Not Recovered/Not Resolved]

NARRATIVE: CASE EVENT DATE: 20180409
